FAERS Safety Report 7457450-9 (Version None)
Quarter: 2011Q2

REPORT INFORMATION
  Report Type: 
  Country: None (occurrence: None)
  Receive Date: 20110504
  Receipt Date: 20110421
  Transmission Date: 20111010
  Serious: No
  Sender: FDA-Public Use
  Company Number: US-B.I. PHARMACEUTICALS,INC./RIDGEFIELD-2011-BP-11450BP

PATIENT
  Age: 74 Year
  Sex: Male

DRUGS (14)
  1. PAROXETINE HCL [Concomitant]
     Indication: NERVOUSNESS
  2. SIMVASTATIN [Concomitant]
     Indication: BLOOD CHOLESTEROL INCREASED
  3. ACTOS [Concomitant]
     Indication: DIABETES MELLITUS
  4. PRADAXA [Suspect]
     Indication: CEREBROVASCULAR ACCIDENT PROPHYLAXIS
     Dosage: 300 MG
     Route: 048
     Dates: start: 20110418
  5. PRADAXA [Suspect]
     Indication: TRANSIENT ISCHAEMIC ATTACK
  6. REGULAR INSULIN [Concomitant]
     Indication: DIABETES MELLITUS
  7. SYNTHROID [Concomitant]
     Indication: HYPOTHYROIDISM
  8. BYETTA [Concomitant]
     Indication: DIABETES MELLITUS
  9. METOPROLOL SUCCINATE [Concomitant]
     Indication: HYPERTENSION
  10. CLONAZEPAM [Concomitant]
     Indication: NERVOUSNESS
  11. COLCRYS [Concomitant]
     Indication: GOUT
  12. ALLOPURINOL [Concomitant]
     Indication: GOUT
  13. LEVEMIR [Concomitant]
     Indication: DIABETES MELLITUS
  14. LASIX [Concomitant]
     Indication: HYPERTENSION

REACTIONS (5)
  - BLOOD GLUCOSE ABNORMAL [None]
  - ABDOMINAL PAIN UPPER [None]
  - VOMITING [None]
  - DIZZINESS [None]
  - NAUSEA [None]
